FAERS Safety Report 7821491-X (Version None)
Quarter: 2011Q4

REPORT INFORMATION
  Report Type: 
  Country: None (occurrence: None)
  Receive Date: 20111018
  Receipt Date: 20111013
  Transmission Date: 20120403
  Serious: Yes (Other)
  Sender: FDA-Public Use
  Company Number: GXKR2011DE02897

PATIENT
  Sex: Female
  Weight: 75 kg

DRUGS (1)
  1. ALLOPURINOL [Suspect]
     Indication: BLOOD UREA INCREASED
     Dosage: 100 MG, UNK
     Route: 048
     Dates: start: 20091001, end: 20110922

REACTIONS (6)
  - VISUAL IMPAIRMENT [None]
  - VISUAL FIELD DEFECT [None]
  - AGE-RELATED MACULAR DEGENERATION [None]
  - CHOROIDAL NEOVASCULARISATION [None]
  - CHORIORETINITIS [None]
  - DETACHMENT OF RETINAL PIGMENT EPITHELIUM [None]
